FAERS Safety Report 5599666-2 (Version None)
Quarter: 2008Q1

REPORT INFORMATION
  Report Type: 
  Country: None (occurrence: None)
  Receive Date: 20080118
  Receipt Date: 20080118
  Transmission Date: 20080703
  Serious: Yes (Other)
  Sender: FDA-Public Use
  Company Number: None

PATIENT
  Sex: Male
  Weight: 75.7507 kg

DRUGS (1)
  1. UROXATRAL [Suspect]
     Indication: PROSTATITIS
     Dosage: 10MG 1 DAILY ORAL
     Route: 048
     Dates: start: 20071101, end: 20071210

REACTIONS (1)
  - ATRIAL FIBRILLATION [None]
